FAERS Safety Report 21641492 (Version 1)
Quarter: 2022Q4

REPORT INFORMATION
  Report Type: Report from Study
  Country: US (occurrence: US)
  Receive Date: 20221125
  Receipt Date: 20221125
  Transmission Date: 20230113
  Serious: No
  Sender: FDA-Public Use
  Company Number: US-ABBVIE-4212587

PATIENT
  Sex: Female

DRUGS (1)
  1. IMBRUVICA [Suspect]
     Active Substance: IBRUTINIB
     Indication: Chronic lymphocytic leukaemia
     Route: 048
     Dates: start: 202101

REACTIONS (6)
  - Rash [Unknown]
  - Immunodeficiency [Unknown]
  - Fungal infection [Unknown]
  - Skin disorder [Unknown]
  - Nausea [Unknown]
  - Diarrhoea [Unknown]
